FAERS Safety Report 11812568 (Version 1)
Quarter: 2015Q4

REPORT INFORMATION
  Report Type: Spontaneous
  Country: US (occurrence: US)
  Receive Date: 20151208
  Receipt Date: 20151208
  Transmission Date: 20160305
  Serious: No
  Sender: FDA-Public Use
  Company Number: US-TAKEDA-2015TUS007325

PATIENT
  Sex: Female

DRUGS (1)
  1. ENTYVIO [Suspect]
     Active Substance: VEDOLIZUMAB
     Indication: CROHN^S DISEASE
     Dosage: 300 MG, UNK
     Route: 042
     Dates: start: 20150519

REACTIONS (9)
  - Chest discomfort [Recovered/Resolved]
  - Rash [Not Recovered/Not Resolved]
  - Eye pruritus [Unknown]
  - Dizziness [Recovered/Resolved]
  - Flushing [Recovered/Resolved]
  - Pruritus generalised [Not Recovered/Not Resolved]
  - Oropharyngeal pain [Recovered/Resolved]
  - Blood pressure fluctuation [Recovered/Resolved]
  - Headache [Not Recovered/Not Resolved]

NARRATIVE: CASE EVENT DATE: 20150519
